FAERS Safety Report 4646398-0 (Version None)
Quarter: 2005Q2

REPORT INFORMATION
  Report Type: 
  Country: None (occurrence: None)
  Receive Date: 20050427
  Receipt Date: 20040615
  Transmission Date: 20051028
  Serious: No
  Sender: FDA-Public Use
  Company Number: US-GLAXOSMITHKLINE-A0514993A

PATIENT
  Age: 92 Year
  Sex: Female

DRUGS (2)
  1. SEREVENT [Suspect]
     Route: 055
  2. MULTIPLE MEDICATIONS [Concomitant]

REACTIONS (1)
  - THERAPEUTIC RESPONSE DECREASED [None]
